FAERS Safety Report 25728940 (Version 1)
Quarter: 2025Q3

REPORT INFORMATION
  Report Type: Report from Study
  Country: EU (occurrence: EU)
  Receive Date: 20250826
  Receipt Date: 20250826
  Transmission Date: 20251020
  Serious: Yes (Death)
  Sender: ABBVIE
  Company Number: EU-ABBVIE-6431515

PATIENT
  Age: 73 Year
  Sex: Female

DRUGS (19)
  1. VENETOCLAX [Suspect]
     Active Substance: VENETOCLAX
     Indication: Acute myeloid leukaemia
     Route: 048
     Dates: start: 20240809, end: 20240809
  2. VENETOCLAX [Suspect]
     Active Substance: VENETOCLAX
     Indication: Acute myeloid leukaemia
     Route: 048
     Dates: start: 20240810, end: 20240810
  3. VENETOCLAX [Suspect]
     Active Substance: VENETOCLAX
     Indication: Acute myeloid leukaemia
     Route: 048
     Dates: start: 20240811, end: 20240811
  4. VENETOCLAX [Suspect]
     Active Substance: VENETOCLAX
     Indication: Acute myeloid leukaemia
     Route: 048
     Dates: start: 20240812, end: 20240822
  5. CHLORPROMAZINE [Concomitant]
     Active Substance: CHLORPROMAZINE
     Indication: Presenile dementia
     Route: 042
     Dates: start: 20240817, end: 20240911
  6. CYTARABINE [Concomitant]
     Active Substance: CYTARABINE
     Indication: Cytoreductive surgery
     Route: 042
     Dates: start: 20240805, end: 20240807
  7. Posaconazolo accord [Concomitant]
     Indication: Antifungal prophylaxis
     Route: 048
     Dates: start: 20240809, end: 20240909
  8. ZOFRAN [Concomitant]
     Active Substance: ONDANSETRON HYDROCHLORIDE
     Indication: Prophylaxis of nausea and vomiting
     Route: 042
     Dates: start: 20240809, end: 20240816
  9. AZITHROMYCIN [Concomitant]
     Active Substance: AZITHROMYCIN
     Indication: Pyrexia
     Route: 042
     Dates: start: 20240810, end: 20240825
  10. AMIKACIN [Concomitant]
     Active Substance: AMIKACIN
     Indication: Pyrexia
     Route: 042
     Dates: start: 20240810, end: 20240825
  11. MEROPENEM [Concomitant]
     Active Substance: MEROPENEM
     Indication: Pyrexia
     Route: 042
     Dates: start: 20240825, end: 20240902
  12. Vancomic [Concomitant]
     Indication: Pyrexia
     Route: 042
     Dates: start: 20240825, end: 20240903
  13. ACYCLOVIR [Concomitant]
     Active Substance: ACYCLOVIR
     Indication: Antiviral prophylaxis
     Route: 048
     Dates: start: 20240809, end: 20240909
  14. AZACITIDINE [Suspect]
     Active Substance: AZACITIDINE
     Indication: Acute myeloid leukaemia
     Route: 065
     Dates: start: 20240809, end: 20240815
  15. ALLOPURINOL [Concomitant]
     Active Substance: ALLOPURINOL
     Indication: Prophylaxis
     Route: 048
     Dates: start: 20240815, end: 20240822
  16. RAMIPRIL [Concomitant]
     Active Substance: RAMIPRIL
     Indication: Hypertension
     Route: 048
     Dates: start: 2016
  17. LEVOTHYROXINE [Concomitant]
     Active Substance: LEVOTHYROXINE
     Indication: Hypothyroidism
     Route: 048
     Dates: start: 1993
  18. ENOXAPARIN [Concomitant]
     Active Substance: ENOXAPARIN
     Indication: Thrombosis prophylaxis
     Dosage: 4000 OTHER
     Route: 058
     Dates: start: 20240804
  19. FENTANYL [Concomitant]
     Active Substance: FENTANYL
     Indication: Pain
     Route: 062
     Dates: start: 2024

REACTIONS (1)
  - Death [Fatal]

NARRATIVE: CASE EVENT DATE: 20240916
